FAERS Safety Report 5056779-1 (Version None)
Quarter: 2006Q2

REPORT INFORMATION
  Report Type: 
  Country: None (occurrence: None)
  Receive Date: 20060619
  Receipt Date: 20050620
  Transmission Date: 20061013
  Serious: Yes (Other)
  Sender: FDA-Public Use
  Company Number: US-2005-008242

PATIENT
  Age: 70 Year
  Sex: Male

DRUGS (3)
  1. FLUDARA [Suspect]
     Indication: CHRONIC LYMPHOCYTIC LEUKAEMIA
     Dosage: 25MG/M2/D X5D Q28D, INTRAVENOUS
     Route: 042
     Dates: end: 19990101
  2. FLUDARA [Suspect]
     Indication: CHRONIC LYMPHOCYTIC LEUKAEMIA
     Dosage: 25MG/M2/D X5D Q28D, INTRAVENOUS
     Route: 042
     Dates: start: 19980701
  3. FOLIC ACID [Concomitant]

REACTIONS (1)
  - NEUTROPENIA [None]
